FAERS Safety Report 25800069 (Version 1)
Quarter: 2025Q3

REPORT INFORMATION
  Report Type: Report from Study
  Country: US (occurrence: US)
  Receive Date: 20250914
  Receipt Date: 20250914
  Transmission Date: 20251020
  Serious: Yes (Other)
  Sender: ASTELLAS
  Company Number: US-ASTELLAS-2025-AER-048907

PATIENT
  Age: 66 Year
  Sex: Male
  Weight: 188 kg

DRUGS (1)
  1. ENZALUTAMIDE [Suspect]
     Active Substance: ENZALUTAMIDE
     Indication: Prostate cancer
     Route: 048
     Dates: start: 20250628

REACTIONS (2)
  - Hot flush [Unknown]
  - Night sweats [Unknown]

NARRATIVE: CASE EVENT DATE: 20250904
